FAERS Safety Report 7249152-9 (Version None)
Quarter: 2011Q1

REPORT INFORMATION
  Report Type: 
  Country: None (occurrence: None)
  Receive Date: 20110110
  Receipt Date: 20110110
  Transmission Date: 20110831
  Serious: Yes (Life-Threatening)
  Sender: FDA-Public Use
  Company Number: None

PATIENT
  Age: 53 Year
  Sex: Male
  Weight: 92.9874 kg

DRUGS (1)
  1. ALCOHOL SWABS TRIAD GROUP [Suspect]
     Dosage: 1 SWAB DALY

REACTIONS (3)
  - PRODUCT QUALITY ISSUE [None]
  - INJECTION SITE INFECTION [None]
  - CELLULITIS [None]
